FAERS Safety Report 17142854 (Version 1)
Quarter: 2019Q4

REPORT INFORMATION
  Report Type: Spontaneous
  Country: FR (occurrence: FR)
  Receive Date: 20191211
  Receipt Date: 20191211
  Transmission Date: 20200122
  Serious: Yes (Death)
  Sender: FDA-Public Use
  Company Number: FR-PFIZER INC-2019532043

PATIENT
  Age: 42 Year
  Sex: Male
  Weight: 75 kg

DRUGS (4)
  1. PACLITAXEL ACCORD [Suspect]
     Active Substance: PACLITAXEL
     Indication: BRONCHIAL CARCINOMA
     Dosage: 330 MG, 1X/DAY
     Route: 041
     Dates: start: 20191016, end: 20191107
  2. POLARAMINE [Suspect]
     Active Substance: DEXCHLORPHENIRAMINE MALEATE
     Indication: CHEMOTHERAPY
     Dosage: 5 MG, 1X/DAY
     Route: 042
     Dates: start: 20191016, end: 20191107
  3. AZANTAC [Suspect]
     Active Substance: RANITIDINE HYDROCHLORIDE
     Indication: CHEMOTHERAPY
     Dosage: 50 MG, 1X/DAY
     Route: 042
     Dates: start: 20191016, end: 20191107
  4. METHYLPREDNISOLONE SODIUM SUCCINATE. [Suspect]
     Active Substance: METHYLPREDNISOLONE SODIUM SUCCINATE
     Indication: CHEMOTHERAPY
     Dosage: 120 MG, 1X/DAY
     Route: 042
     Dates: start: 20191016, end: 20191107

REACTIONS (1)
  - Anaphylactic shock [Fatal]

NARRATIVE: CASE EVENT DATE: 20191107
